FAERS Safety Report 4390087-7 (Version None)
Quarter: 2004Q2

REPORT INFORMATION
  Report Type: 
  Country: None (occurrence: None)
  Receive Date: 20040630
  Receipt Date: 20040617
  Transmission Date: 20050107
  Serious: Yes (Other)
  Sender: FDA-Public Use
  Company Number: 2004220160US

PATIENT
  Age: 55 Year
  Sex: Male

DRUGS (8)
  1. DEPO-MEDROL [Suspect]
     Dosage: 60 MG TID IV
     Route: 042
  2. CLOPIDOGREL (CLOPIDOGREL) [Suspect]
     Dosage: SEE IMAGE
  3. ASPIRIN [Concomitant]
  4. AMLODIPINE [Concomitant]
  5. SIMVASTATIN [Concomitant]
  6. LISINOPRIL [Concomitant]
  7. ISOSORBIDE MONONITRATE [Concomitant]
  8. ZOLPIDEM (ZOLPIDEM) [Concomitant]

REACTIONS (9)
  - ARTERIAL STENT INSERTION [None]
  - BLOOD LACTATE DEHYDROGENASE INCREASED [None]
  - DYSPNOEA [None]
  - HAEMATOCRIT DECREASED [None]
  - HAEMOGLOBIN DECREASED [None]
  - HYPERHIDROSIS [None]
  - LEUKOCYTOSIS [None]
  - RENAL FAILURE [None]
  - VOMITING [None]
